FAERS Safety Report 9374566 (Version 3)
Quarter: 2014Q3

REPORT INFORMATION
  Report Type: Spontaneous
  Country: CN (occurrence: CN)
  Receive Date: 20130628
  Receipt Date: 20140902
  Transmission Date: 20150326
  Serious: Yes (Death, Other)
  Sender: FDA-Public Use
  Company Number: CN-ROCHE-1242714

PATIENT
  Age: 45 Year
  Sex: Female

DRUGS (2)
  1. RIBAVIRIN. [Suspect]
     Active Substance: RIBAVIRIN
     Indication: CHRONIC HEPATITIS C
     Route: 048
     Dates: start: 20121026
  2. PEGASYS [Suspect]
     Active Substance: PEGINTERFERON ALFA-2A
     Indication: CHRONIC HEPATITIS C
     Route: 058
     Dates: start: 20121026, end: 20130616

REACTIONS (13)
  - Circulatory collapse [Fatal]
  - Weight decreased [Unknown]
  - Brain herniation [Fatal]
  - Fatigue [Unknown]
  - Platelet count decreased [Fatal]
  - Menopausal symptoms [Unknown]
  - Petechiae [Unknown]
  - Respiratory failure [Fatal]
  - Gingival bleeding [Unknown]
  - Hypothyroidism [Unknown]
  - Thrombocytopenia [Unknown]
  - Cerebral haemorrhage [Fatal]
  - Bone marrow disorder [Unknown]

NARRATIVE: CASE EVENT DATE: 201211
